FAERS Safety Report 24839075 (Version 1)
Quarter: 2025Q1

REPORT INFORMATION
  Report Type: Spontaneous
  Country: US (occurrence: US)
  Receive Date: 20250114
  Receipt Date: 20250114
  Transmission Date: 20250409
  Serious: Yes (Other)
  Sender: CHEPLAPHARM
  Company Number: US-CHEPLA-2025000306

PATIENT
  Age: 24 Year
  Sex: Female

DRUGS (3)
  1. GANCICLOVIR [Suspect]
     Active Substance: GANCICLOVIR
     Indication: Natural killer-cell leukaemia
  2. BORTEZOMIB [Suspect]
     Active Substance: BORTEZOMIB
     Indication: Natural killer-cell leukaemia
  3. ALEMTUZUMAB [Suspect]
     Active Substance: ALEMTUZUMAB
     Indication: Natural killer-cell leukaemia

REACTIONS (4)
  - Disseminated intravascular coagulation [Unknown]
  - Septic shock [Unknown]
  - General physical health deterioration [Unknown]
  - Off label use [Recovered/Resolved]
